FAERS Safety Report 21399394 (Version 1)
Quarter: 2022Q4

REPORT INFORMATION
  Report Type: Spontaneous
  Country: DE (occurrence: DE)
  Receive Date: 20221001
  Receipt Date: 20221001
  Transmission Date: 20230112
  Serious: Yes (Hospitalization)
  Sender: FDA-Public Use
  Company Number: DE-ADRED-08141-01

PATIENT
  Age: 59 Year
  Sex: Female

DRUGS (2)
  1. AMOXICILLIN [Suspect]
     Active Substance: AMOXICILLIN
     Route: 048
  2. ROXITHROMYCIN [Suspect]
     Active Substance: ROXITHROMYCIN
     Route: 048

REACTIONS (5)
  - Pyrexia [Unknown]
  - Product administration error [Unknown]
  - Contraindicated product administered [Unknown]
  - Rash [Unknown]
  - Rash [Unknown]
